FAERS Safety Report 20590382 (Version 3)
Quarter: 2022Q3

REPORT INFORMATION
  Report Type: Report from Study
  Country: NO (occurrence: None)
  Receive Date: 20220314
  Receipt Date: 20220919
  Transmission Date: 20221026
  Serious: Yes (Hospitalization)
  Sender: FDA-Public Use
  Company Number: NO-ROCHE-3045744

PATIENT
  Age: 60 Year
  Sex: Female

DRUGS (30)
  1. COBIMETINIB [Suspect]
     Active Substance: COBIMETINIB
     Indication: Neoplasm malignant
     Route: 048
     Dates: start: 20220118, end: 20220214
  2. COBIMETINIB [Suspect]
     Active Substance: COBIMETINIB
     Route: 048
     Dates: start: 20220218, end: 20220403
  3. COBIMETINIB [Suspect]
     Active Substance: COBIMETINIB
     Route: 065
     Dates: start: 20220404, end: 20220501
  4. COBIMETINIB [Suspect]
     Active Substance: COBIMETINIB
     Dosage: CYCLE 4
     Route: 065
     Dates: start: 20220502, end: 20220529
  5. COBIMETINIB [Suspect]
     Active Substance: COBIMETINIB
     Route: 065
     Dates: start: 20220530
  6. COBIMETINIB [Suspect]
     Active Substance: COBIMETINIB
     Route: 065
     Dates: start: 20220627
  7. VEMURAFENIB [Suspect]
     Active Substance: VEMURAFENIB
     Indication: Neoplasm malignant
     Route: 048
     Dates: start: 20220118, end: 20220214
  8. VEMURAFENIB [Suspect]
     Active Substance: VEMURAFENIB
     Route: 048
     Dates: start: 20220218
  9. VEMURAFENIB [Suspect]
     Active Substance: VEMURAFENIB
     Dosage: CYCLE 1
     Route: 065
     Dates: start: 20220118, end: 20220214
  10. VEMURAFENIB [Suspect]
     Active Substance: VEMURAFENIB
     Dosage: CYCLE 2?DOSE REDUCTION AND POSTPONED SEVERAL TIMES DUE TO SEVERAL AES.
     Route: 065
     Dates: start: 20220218, end: 20220403
  11. VEMURAFENIB [Suspect]
     Active Substance: VEMURAFENIB
     Route: 065
     Dates: start: 20220404, end: 20220501
  12. VEMURAFENIB [Suspect]
     Active Substance: VEMURAFENIB
     Dosage: CYCLE 4
     Route: 065
     Dates: start: 20220502, end: 20220529
  13. VEMURAFENIB [Suspect]
     Active Substance: VEMURAFENIB
     Dosage: CYCLE 5
     Route: 065
     Dates: start: 20220530
  14. VEMURAFENIB [Suspect]
     Active Substance: VEMURAFENIB
     Route: 065
     Dates: start: 20220627
  15. LEVOTHYROXINE SODIUM [Concomitant]
     Active Substance: LEVOTHYROXINE SODIUM
  16. LENVATINIB [Concomitant]
     Active Substance: LENVATINIB
  17. AMLODIPINE [Concomitant]
     Active Substance: AMLODIPINE BESYLATE
  18. CLOBETASOL [Concomitant]
     Active Substance: CLOBETASOL
  19. MOVICOL [Concomitant]
     Active Substance: POLYETHYLENE GLYCOL 3350\POTASSIUM CHLORIDE\SODIUM BICARBONATE\SODIUM CHLORIDE
  20. CETIRIZINE HYDROCHLORIDE [Concomitant]
     Active Substance: CETIRIZINE HYDROCHLORIDE
     Indication: Rash maculo-papular
     Dates: start: 20220208
  21. UREA [Concomitant]
     Active Substance: UREA
     Indication: Rash maculo-papular
     Dates: start: 20220203
  22. ELIQUIS [Concomitant]
     Active Substance: APIXABAN
     Dates: start: 20220204
  23. PANTOPRAZOLE SODIUM [Concomitant]
     Active Substance: PANTOPRAZOLE SODIUM
     Dates: start: 20220117
  24. IBUPROFEN [Concomitant]
     Active Substance: IBUPROFEN
     Dates: start: 2021
  25. AMITRIPTYLINE HYDROCHLORIDE [Concomitant]
     Active Substance: AMITRIPTYLINE HYDROCHLORIDE
  26. PARACET (NORWAY) [Concomitant]
  27. DEXAMETHASONE [Concomitant]
     Active Substance: DEXAMETHASONE
     Dates: start: 20220117, end: 20220215
  28. ENOXAPARIN [Concomitant]
     Active Substance: ENOXAPARIN
  29. EURAX [Concomitant]
     Active Substance: CROTAMITON
  30. EBASTINE [Concomitant]
     Active Substance: EBASTINE

REACTIONS (3)
  - Herpes simplex reactivation [Recovered/Resolved]
  - Bacterial infection [Recovered/Resolved]
  - Pyrexia [Recovered/Resolved]

NARRATIVE: CASE EVENT DATE: 20220211
